FAERS Safety Report 14000271 (Version 1)
Quarter: 2017Q3

REPORT INFORMATION
  Report Type: Spontaneous
  Country: US (occurrence: US)
  Receive Date: 20170922
  Receipt Date: 20170922
  Transmission Date: 20171128
  Serious: Yes (Other)
  Sender: FDA-Public Use
  Company Number: US-ASTRAZENECA-2017SE96501

PATIENT
  Age: 68 Year
  Sex: Female

DRUGS (1)
  1. BRILINTA [Suspect]
     Active Substance: TICAGRELOR
     Indication: STENT PLACEMENT
     Route: 048

REACTIONS (3)
  - Asthenia [Unknown]
  - Gastrointestinal haemorrhage [Unknown]
  - Diverticulitis [Unknown]

NARRATIVE: CASE EVENT DATE: 20170820
